FAERS Safety Report 9262938 (Version 10)
Quarter: 2014Q1

REPORT INFORMATION
  Report Type: Spontaneous
  Country: AR (occurrence: AR)
  Receive Date: 20130430
  Receipt Date: 20140204
  Transmission Date: 20141002
  Serious: Yes (Other)
  Sender: FDA-Public Use
  Company Number: AR-PFIZER INC-2013129734

PATIENT
  Age: 61 Year
  Sex: Female

DRUGS (6)
  1. SUTENT [Suspect]
     Indication: METASTATIC RENAL CELL CARCINOMA
     Dosage: 50 MG, 1X/DAY, 4 WEEKS ON AND 2 WEEKS OFF
     Dates: start: 20120815
  2. SUTENT [Suspect]
     Dosage: 37.5 MG, 1X/DAY
     Dates: start: 20121115, end: 20131108
  3. PLATSUL A [Concomitant]
  4. AMOXICILINA + CLAVULANICO [Concomitant]
  5. ALENDRONATO [Concomitant]
     Dosage: UNK
  6. OMEPRAZOL [Concomitant]
     Dosage: UNK

REACTIONS (11)
  - Lymphadenitis bacterial [Recovered/Resolved]
  - Skin ulcer [Recovering/Resolving]
  - Infected skin ulcer [Recovering/Resolving]
  - Anaemia [Recovering/Resolving]
  - Pain in extremity [Recovering/Resolving]
  - Acne [Recovered/Resolved]
  - Decreased immune responsiveness [Not Recovered/Not Resolved]
  - Pain [Not Recovered/Not Resolved]
  - Glossodynia [Not Recovered/Not Resolved]
  - Disease progression [Not Recovered/Not Resolved]
  - Metastatic renal cell carcinoma [Not Recovered/Not Resolved]
